FAERS Safety Report 14803017 (Version 1)
Quarter: 2018Q2

REPORT INFORMATION
  Report Type: Spontaneous
  Country: US (occurrence: US)
  Receive Date: 20180424
  Receipt Date: 20180424
  Transmission Date: 20180711
  Serious: Yes (Other)
  Sender: FDA-Public Use
  Company Number: US-SENTYNL THERAPEUTICS, INC.  -2046411

PATIENT
  Sex: Female

DRUGS (2)
  1. LEVORPHANOL TARTRATE. [Suspect]
     Active Substance: LEVORPHANOL TARTRATE
     Indication: PRODUCT USED FOR UNKNOWN INDICATION
  2. VIIBRYD [Suspect]
     Active Substance: VILAZODONE HYDROCHLORIDE

REACTIONS (2)
  - Serotonin syndrome [Unknown]
  - Drug interaction [Unknown]
